FAERS Safety Report 4559745-5 (Version None)
Quarter: 2005Q1

REPORT INFORMATION
  Report Type: 
  Country: None (occurrence: None)
  Receive Date: 20050114
  Receipt Date: 20040924
  Transmission Date: 20050727
  Serious: Yes (Life-Threatening, Hospitalization)
  Sender: FDA-Public Use
  Company Number: BDI-006506

PATIENT
  Age: 57 Year
  Sex: Male

DRUGS (3)
  1. PROHANCE [Suspect]
     Indication: ANGIOGRAM
     Dosage: 20 ML ONCE IV
     Route: 042
     Dates: start: 20040921, end: 20040921
  2. PROHANCE [Suspect]
     Indication: FATIGUE
     Dosage: 20 ML ONCE IV
     Route: 042
     Dates: start: 20040921, end: 20040921
  3. PROHANCE [Suspect]
     Indication: MALAISE
     Dosage: 20 ML ONCE IV
     Route: 042
     Dates: start: 20040921, end: 20040921

REACTIONS (1)
  - ANAPHYLACTOID REACTION [None]
